FAERS Safety Report 8385687-3 (Version None)
Quarter: 2012Q2

REPORT INFORMATION
  Report Type: 
  Country: None (occurrence: None)
  Receive Date: 20120523
  Receipt Date: 20120523
  Transmission Date: 20120825
  Serious: No
  Sender: FDA-Public Use
  Company Number: None

PATIENT

DRUGS (1)
  1. LORAZEPAM [Suspect]
     Indication: DEPRESSION
     Dosage: ORAL (047)
     Route: 048

REACTIONS (4)
  - HYPERHIDROSIS [None]
  - PRODUCT SUBSTITUTION ISSUE [None]
  - TREMOR [None]
  - BLOOD PRESSURE INCREASED [None]
